FAERS Safety Report 5840764-3 (Version None)
Quarter: 2008Q3

REPORT INFORMATION
  Report Type: 
  Country: None (occurrence: None)
  Receive Date: 20080811
  Receipt Date: 20080802
  Transmission Date: 20090109
  Serious: Yes (Hospitalization, Other)
  Sender: FDA-Public Use
  Company Number: US-PFIZER INC-2008051922

PATIENT
  Sex: Male
  Weight: 74.8 kg

DRUGS (1)
  1. LIPITOR [Suspect]
     Indication: BLOOD CHOLESTEROL INCREASED
     Dates: start: 20021101, end: 20070401

REACTIONS (6)
  - CARDIAC ABLATION [None]
  - HERNIA REPAIR [None]
  - ILL-DEFINED DISORDER [None]
  - LOSS OF CONSCIOUSNESS [None]
  - MYALGIA [None]
  - RENAL FAILURE ACUTE [None]
